FAERS Safety Report 8762271 (Version 2)
Quarter: 2013Q4

REPORT INFORMATION
  Report Type: Spontaneous
  Country: US (occurrence: US)
  Receive Date: 20120830
  Receipt Date: 20131101
  Transmission Date: 20140711
  Serious: No
  Sender: FDA-Public Use
  Company Number: US-009507513-1208USA008588

PATIENT
  Age: 60 Year
  Sex: Female
  Weight: 61.22 kg

DRUGS (2)
  1. MIRALAX [Suspect]
     Indication: FUNCTIONAL GASTROINTESTINAL DISORDER
     Dosage: UNK, UNKNOWN
     Dates: start: 201207
  2. MIRALAX [Suspect]
     Indication: MEDICAL OBSERVATION

REACTIONS (3)
  - Oedema peripheral [Recovered/Resolved]
  - Weight increased [Recovered/Resolved]
  - Incorrect drug administration duration [Unknown]
